FAERS Safety Report 8885342 (Version 2)
Quarter: 2012Q4

REPORT INFORMATION
  Report Type: 
  Country: US (occurrence: US)
  Receive Date: 20121101
  Receipt Date: 20121107
  Transmission Date: 20130627
  Serious: Yes (Death)
  Sender: FDA-Public Use
  Company Number: US-ROCHE-1151266

PATIENT
  Sex: Female
  Weight: 57.1 kg

DRUGS (5)
  1. AVASTIN [Suspect]
     Indication: LUNG NEOPLASM MALIGNANT
     Route: 042
     Dates: start: 20110825, end: 20120118
  2. ALIMTA [Concomitant]
     Route: 065
  3. TAXOL [Concomitant]
     Route: 065
     Dates: start: 20110323
  4. CARBOPLATIN [Concomitant]
     Route: 065
     Dates: start: 20110323
  5. XGEVA [Concomitant]

REACTIONS (8)
  - Lung neoplasm malignant [Fatal]
  - Metastases to central nervous system [Fatal]
  - Metastases to liver [Fatal]
  - Dizziness [Unknown]
  - Nausea [Unknown]
  - Vomiting [Unknown]
  - Eyelid ptosis [Unknown]
  - Arthralgia [Unknown]
